FAERS Safety Report 7627257-8 (Version None)
Quarter: 2011Q3

REPORT INFORMATION
  Report Type: 
  Country: None (occurrence: None)
  Receive Date: 20110721
  Receipt Date: 20110712
  Transmission Date: 20111222
  Serious: Yes (Other)
  Sender: FDA-Public Use
  Company Number: PHHY2011US62988

PATIENT
  Sex: Female
  Weight: 147 kg

DRUGS (1)
  1. EXELON [Suspect]
     Dosage: 4.6 MG, DAILY
     Route: 062

REACTIONS (1)
  - URINARY RETENTION [None]
